FAERS Safety Report 7744482-6 (Version None)
Quarter: 2011Q3

REPORT INFORMATION
  Report Type: 
  Country: None (occurrence: None)
  Receive Date: 20110912
  Receipt Date: 20110907
  Transmission Date: 20111222
  Serious: Yes (Other)
  Sender: FDA-Public Use
  Company Number: US-PFIZER INC-2011210748

PATIENT
  Sex: Female

DRUGS (1)
  1. CHANTIX [Suspect]
     Dosage: UNK
     Dates: end: 20110701

REACTIONS (3)
  - HEPATIC STEATOSIS [None]
  - CHOLELITHIASIS [None]
  - HEPATIC ENZYME INCREASED [None]
